FAERS Safety Report 6983881-7 (Version None)
Quarter: 2010Q3

REPORT INFORMATION
  Report Type: 
  Country: None (occurrence: None)
  Receive Date: 20100914
  Receipt Date: 20100907
  Transmission Date: 20110219
  Serious: Yes (Death, Other)
  Sender: FDA-Public Use
  Company Number: JP-ELI_LILLY_AND_COMPANY-JP201009001527

PATIENT
  Age: 76 Year
  Sex: Female
  Weight: 46 kg

DRUGS (5)
  1. GEMCITABINE HCL [Suspect]
     Indication: BILE DUCT CANCER NON-RESECTABLE
     Dosage: 1390 MG, OTHER
     Route: 042
     Dates: start: 20090812, end: 20090924
  2. TS 1 (DRUG CODE 015935.01.001) [Suspect]
     Indication: BILE DUCT CANCER NON-RESECTABLE
     Dosage: 40 MG, 2/D (TAKE TWO WEEKS AND ONE WEEK OFF)
     Route: 048
     Dates: start: 20090812, end: 20091001
  3. PRIMPERAN TAB [Concomitant]
     Indication: PROPHYLAXIS OF NAUSEA AND VOMITING
     Dosage: 5 MG, 3/D
     Route: 048
     Dates: start: 20090812, end: 20091001
  4. MAGLAX [Concomitant]
     Indication: CONSTIPATION
     Dosage: 330 MG, 3/D
     Route: 048
     Dates: start: 20090903, end: 20091001
  5. ENSURE                             /06184901/ [Concomitant]
     Indication: DECREASED APPETITE
     Dosage: 250 ML, DAILY (1/D)
     Route: 048
     Dates: start: 20090924, end: 20091001

REACTIONS (2)
  - INTERSTITIAL LUNG DISEASE [None]
  - MALIGNANT NEOPLASM PROGRESSION [None]
